FAERS Safety Report 25987937 (Version 1)
Quarter: 2025Q4

REPORT INFORMATION
  Report Type: Spontaneous
  Country: QA (occurrence: None)
  Receive Date: 20251103
  Receipt Date: 20251103
  Transmission Date: 20260118
  Serious: Yes (Other)
  Sender: NATCO PHARMA
  Company Number: QA-NATCOUSA-2025-NATCOUSA-000355

PATIENT
  Age: 54 Year
  Sex: Female

DRUGS (2)
  1. EVEROLIMUS [Suspect]
     Active Substance: EVEROLIMUS
     Indication: Invasive ductal breast carcinoma
     Route: 065
     Dates: start: 202106
  2. EXEMESTANE [Concomitant]
     Active Substance: EXEMESTANE
     Indication: Invasive ductal breast carcinoma
     Dates: start: 202106

REACTIONS (1)
  - Organising pneumonia [Recovered/Resolved]
